FAERS Safety Report 4760280-X (Version None)
Quarter: 2005Q3

REPORT INFORMATION
  Report Type: 
  Country: None (occurrence: None)
  Receive Date: 20050902
  Receipt Date: 20050826
  Transmission Date: 20060218
  Serious: Yes (Hospitalization)
  Sender: FDA-Public Use
  Company Number: AU-ROCHE-415679

PATIENT
  Age: 32 Year
  Sex: Male

DRUGS (3)
  1. PEGASYS [Suspect]
     Indication: DRUG USE FOR UNKNOWN INDICATION
     Route: 065
  2. RIBAVIRIN [Suspect]
     Indication: DRUG USE FOR UNKNOWN INDICATION
     Route: 065
     Dates: start: 20050415
  3. LIPITOR [Concomitant]

REACTIONS (7)
  - AFFECT LABILITY [None]
  - AGGRESSION [None]
  - ANGER [None]
  - DISORIENTATION [None]
  - IRRITABILITY [None]
  - PARANOIA [None]
  - VOMITING [None]
